FAERS Safety Report 5059732-7 (Version None)
Quarter: 2006Q3

REPORT INFORMATION
  Report Type: 
  Country: None (occurrence: None)
  Receive Date: 20060724
  Receipt Date: 20060717
  Transmission Date: 20061208
  Serious: Yes (Hospitalization)
  Sender: FDA-Public Use
  Company Number: US-MERCK-0607USA03705

PATIENT
  Age: 46 Year
  Sex: Female

DRUGS (5)
  1. FOSAMAX [Suspect]
     Route: 048
     Dates: start: 20050501, end: 20060501
  2. FORTAL (PENTAZOCINE) [Concomitant]
     Route: 051
     Dates: start: 20060531
  3. HYDROCODONE BITARTRATE [Concomitant]
     Indication: PAIN
     Route: 065
     Dates: start: 20050501
  4. XANAX [Concomitant]
     Route: 065
     Dates: start: 20050701
  5. ZOLOFT [Concomitant]
     Route: 065
     Dates: start: 20050701

REACTIONS (4)
  - DRUG INEFFECTIVE [None]
  - OESOPHAGEAL DISCOMFORT [None]
  - SPINAL FRACTURE [None]
  - STOMACH DISCOMFORT [None]
